FAERS Safety Report 5105237-4 (Version None)
Quarter: 2006Q3

REPORT INFORMATION
  Report Type: 
  Country: None (occurrence: None)
  Receive Date: 20060911
  Receipt Date: 20060829
  Transmission Date: 20061208
  Serious: Yes (Death, Life-Threatening)
  Sender: FDA-Public Use
  Company Number: HQWYE440930SEP04

PATIENT
  Age: 56 Year
  Sex: Female
  Weight: 86.08 kg

DRUGS (30)
  1. MYLOTARG [Suspect]
     Indication: ACUTE MYELOID LEUKAEMIA
     Dosage: 10.7 MG 1X PER 1 DAY, INTRAVENOUS
     Route: 042
     Dates: start: 20040908, end: 20040908
  2. VANCOMYCIN [Concomitant]
  3. LEVOFLOXACIN [Concomitant]
  4. ACYCLOVIR [Concomitant]
  5. POTASSIUM CHLORIDE [Concomitant]
  6. LORAZEPAM [Concomitant]
  7. SODIUM BICARBONATE IN PLASTIC CONTAINER [Concomitant]
  8. SODIUM CHLORIDE 0.9% [Concomitant]
  9. FLUCONAZOLE [Concomitant]
  10. PANTOPRAZOLE SODIUM [Concomitant]
  11. ACETAMINOPHEN [Concomitant]
  12. DEXAMETHASONE TAB [Concomitant]
  13. GRANISETRON HYDROCHLORIDE (GRANISETRON HYDROCHLORIDE) [Concomitant]
  14. MAGNESIUM (MAGNESIUM) [Concomitant]
  15. MAGNESIUM OXIDE (MAGNESIUM OXIDE) [Concomitant]
  16. ZOSYN [Concomitant]
  17. METIPRANOLOL (METIPRANOLOL) [Concomitant]
  18. ALLOPURINOL [Concomitant]
  19. VENLAFAXINE HCL [Concomitant]
  20. MORPHINE SULFATE [Concomitant]
  21. DOLASETRON MESILATE (DOLASETRON MESILATE) [Concomitant]
  22. HYDROMORPHONE HCL [Concomitant]
  23. NALOXONE HYDROCHLORIDE (NALOXONE HYDROCHLORIDE) [Concomitant]
  24. SULFADIAZINE [Concomitant]
  25. PROMETHAZINE HYDROCHLORIDE TAB [Concomitant]
  26. TRAZODONE HCL [Concomitant]
  27. DIPHENHYDRAMINE HCL [Concomitant]
  28. SODIUM PHOSPHATE MONOBASIC (SODIUM PHOSPHATE MONOBASIC) [Concomitant]
  29. MAGNESIUM SULFATE [Concomitant]
  30. FUROSEMIDE [Concomitant]

REACTIONS (11)
  - ABDOMINAL PAIN [None]
  - ALANINE AMINOTRANSFERASE INCREASED [None]
  - ASCITES [None]
  - ASPARTATE AMINOTRANSFERASE INCREASED [None]
  - BLOOD ALBUMIN DECREASED [None]
  - BLOOD ALKALINE PHOSPHATASE INCREASED [None]
  - BLOOD BILIRUBIN INCREASED [None]
  - HEPATIC FUNCTION ABNORMAL [None]
  - NEUTROPENIC SEPSIS [None]
  - SYSTEMIC CANDIDA [None]
  - VENOOCCLUSIVE LIVER DISEASE [None]
